FAERS Safety Report 12134034 (Version 2)
Quarter: 2016Q1

REPORT INFORMATION
  Report Type: Report from Study
  Country: TN (occurrence: TN)
  Receive Date: 20160301
  Receipt Date: 20160315
  Transmission Date: 20160526
  Serious: Yes (Death)
  Sender: FDA-Public Use
  Company Number: PHHY2016TN026598

PATIENT
  Sex: Male

DRUGS (2)
  1. EXJADE [Suspect]
     Active Substance: DEFERASIROX
     Indication: CONGENITAL APLASTIC ANAEMIA
     Dosage: 750 MG, QD
     Route: 048
     Dates: start: 20150524
  2. FERRIPROX [Concomitant]
     Active Substance: DEFERIPRONE
     Indication: IRON OVERLOAD
     Route: 065

REACTIONS (5)
  - Congenital aplastic anaemia [Fatal]
  - Infection [Fatal]
  - C-reactive protein increased [Unknown]
  - Disease progression [Fatal]
  - Serum ferritin increased [Unknown]
